FAERS Safety Report 24534754 (Version 1)
Quarter: 2024Q4

REPORT INFORMATION
  Report Type: Report from Study
  Country: US (occurrence: US)
  Receive Date: 20241022
  Receipt Date: 20241022
  Transmission Date: 20250115
  Serious: Yes (Hospitalization, Other)
  Sender: JAZZ
  Company Number: US-JAZZ PHARMACEUTICALS-2023-US-008900

PATIENT
  Age: 60 Year
  Sex: Female

DRUGS (27)
  1. SODIUM OXYBATE [Suspect]
     Active Substance: SODIUM OXYBATE
     Indication: Narcolepsy
     Dosage: UNK
  2. SODIUM OXYBATE [Suspect]
     Active Substance: SODIUM OXYBATE
     Indication: Cataplexy
  3. SODIUM OXYBATE [Suspect]
     Active Substance: SODIUM OXYBATE
     Indication: Somnolence
  4. XYREM [Suspect]
     Active Substance: SODIUM OXYBATE
     Indication: Narcolepsy
     Dosage: UNK
  5. AMITRIPTYLINE HYDROCHLORIDE [Concomitant]
     Active Substance: AMITRIPTYLINE HYDROCHLORIDE
     Dosage: UNK
     Dates: start: 20150116
  6. DIVALPROEX SODIUM [Concomitant]
     Active Substance: DIVALPROEX SODIUM
     Dosage: UNK
     Dates: start: 20150116
  7. DEXILANT [Concomitant]
     Active Substance: DEXLANSOPRAZOLE
     Dosage: UNK
     Dates: start: 20150116, end: 202212
  8. PRISTIQ EXTENDED-RELEASE [Concomitant]
     Active Substance: DESVENLAFAXINE SUCCINATE
     Dosage: UNK
     Dates: start: 20150116
  9. BENTYL [Concomitant]
     Active Substance: DICYCLOMINE HYDROCHLORIDE
     Dosage: UNK
     Dates: start: 20150116
  10. PRAVASTATIN SODIUM [Concomitant]
     Active Substance: PRAVASTATIN SODIUM
     Dosage: UNK
     Dates: start: 20150116
  11. BENLYSTA [Concomitant]
     Active Substance: BELIMUMAB
     Dosage: UNK
     Dates: start: 20151222
  12. ALDACTONE [Concomitant]
     Active Substance: SPIRONOLACTONE
     Dosage: UNK
     Dates: start: 20151222
  13. LATUDA [Concomitant]
     Active Substance: LURASIDONE HYDROCHLORIDE
     Dosage: UNK
     Dates: start: 20180601
  14. QULIPTA [Concomitant]
     Active Substance: ATOGEPANT
     Dosage: UNK
     Dates: start: 20220218, end: 202304
  15. UBRELVY [Concomitant]
     Active Substance: UBROGEPANT
     Dosage: UNK
     Dates: start: 20220221, end: 202304
  16. PREVACID [Concomitant]
     Active Substance: LANSOPRAZOLE
     Dosage: 30 MILLIGRAM, BID
     Dates: start: 20221201
  17. LINZESS [Concomitant]
     Active Substance: LINACLOTIDE
     Dosage: ONCE A DAY
     Dates: start: 20221228
  18. PROVIGIL [Concomitant]
     Active Substance: MODAFINIL
     Dosage: ? OF A TABLET A DAY
     Dates: start: 20220628
  19. BUSPAR [Concomitant]
     Active Substance: BUSPIRONE HYDROCHLORIDE
     Dosage: 2 TABLETS, TWICE A DAY
  20. TOPAMAX [Concomitant]
     Active Substance: TOPIRAMATE
     Dosage: 25 MILLIGRAM, BID
  21. TRESIBA [Concomitant]
     Active Substance: INSULIN DEGLUDEC
     Dosage: 42 UNITS AT NIGHT
  22. OZEMPIC [Concomitant]
     Active Substance: SEMAGLUTIDE
     Dosage: ONE UNIT ONCE A WEEK
  23. VITAMIN D2 [Concomitant]
     Active Substance: ERGOCALCIFEROL
     Indication: Product used for unknown indication
     Dosage: UNK
     Dates: start: 20150116
  24. SUNOSI [Concomitant]
     Active Substance: SOLRIAMFETOL
     Indication: Product used for unknown indication
     Dosage: UNK
     Dates: start: 20230823
  25. LORAZEPAM [Concomitant]
     Active Substance: LORAZEPAM
     Indication: Product used for unknown indication
     Dosage: UNK
     Dates: start: 20240101
  26. MOUNJARO [Concomitant]
     Active Substance: TIRZEPATIDE
     Indication: Product used for unknown indication
     Dosage: 5 MG/0.5 ML PEN
     Dates: start: 20231129
  27. OMEPRAZOLE [Concomitant]
     Active Substance: OMEPRAZOLE
     Indication: Product used for unknown indication
     Dosage: UNK
     Dates: start: 20240129

REACTIONS (7)
  - Hospitalisation [Unknown]
  - Diverticulitis [Unknown]
  - Appendix disorder [Unknown]
  - Neuralgia [Unknown]
  - Temporomandibular pain and dysfunction syndrome [Unknown]
  - Pruritus [Unknown]
  - Hypertension [Unknown]

NARRATIVE: CASE EVENT DATE: 20221201
